FAERS Safety Report 24056178 (Version 1)
Quarter: 2024Q3

REPORT INFORMATION
  Report Type: Spontaneous
  Country: US (occurrence: None)
  Receive Date: 20240704
  Receipt Date: 20240704
  Transmission Date: 20241017
  Serious: Yes (Hospitalization)
  Sender: Public
  Company Number: None

PATIENT
  Age: 70 Year
  Sex: Male
  Weight: 80.6 kg

DRUGS (4)
  1. FLUOROURACIL [Suspect]
     Active Substance: FLUOROURACIL
     Dates: end: 20240605
  2. CAMPTOSAR [Suspect]
     Active Substance: IRINOTECAN HYDROCHLORIDE
     Dates: end: 20240605
  3. LEUCOVORIN CALCIUM [Suspect]
     Active Substance: LEUCOVORIN CALCIUM
     Dates: end: 20240605
  4. ELOXATIN [Suspect]
     Active Substance: OXALIPLATIN
     Dates: end: 20240605

REACTIONS (8)
  - Hypokalaemia [None]
  - Femur fracture [None]
  - Fall [None]
  - Gait disturbance [None]
  - Asthenia [None]
  - Head injury [None]
  - Hypomagnesaemia [None]
  - Metabolic acidosis [None]

NARRATIVE: CASE EVENT DATE: 20240615
